FAERS Safety Report 16762359 (Version 1)
Quarter: 2019Q3

REPORT INFORMATION
  Report Type: Spontaneous
  Country: GB (occurrence: GB)
  Receive Date: 20190831
  Receipt Date: 20190831
  Transmission Date: 20191005
  Serious: Yes (Hospitalization)
  Sender: FDA-Public Use
  Company Number: GB-TEVA-2019-GB-1099897

PATIENT
  Age: 91 Year
  Sex: Female
  Weight: 55.1 kg

DRUGS (16)
  1. SALBUTAMOL [Concomitant]
     Active Substance: ALBUTEROL
  2. PARACETAMOL [Concomitant]
     Active Substance: ACETAMINOPHEN
  3. OXYCODONE [Concomitant]
     Active Substance: OXYCODONE
  4. OMEPRAZOLE. [Concomitant]
     Active Substance: OMEPRAZOLE
  5. FLUDROCORTISONE [Concomitant]
     Active Substance: FLUDROCORTISONE
  6. BISOPROLOL [Suspect]
     Active Substance: BISOPROLOL
     Indication: ATRIAL FIBRILLATION
     Dosage: IN THE MORNING 2.5 MG
     Route: 048
     Dates: start: 20180701, end: 20190530
  7. ACCRETE D3 [Concomitant]
     Active Substance: CALCIUM CARBONATE\CHOLECALCIFEROL
  8. PREDNISOLONE. [Concomitant]
     Active Substance: PREDNISOLONE
  9. ATORVASTATIN [Concomitant]
     Active Substance: ATORVASTATIN
  10. BETAMETHASONE. [Concomitant]
     Active Substance: BETAMETHASONE
  11. SIRDUPLA [Concomitant]
     Active Substance: FLUTICASONE PROPIONATE\SALMETEROL XINAFOATE
  12. ENOXAPARIN [Concomitant]
     Active Substance: ENOXAPARIN
  13. FEXOFENADINE HYDROCHLORIDE. [Concomitant]
     Active Substance: FEXOFENADINE HYDROCHLORIDE
  14. IPRATROPIUM [Concomitant]
     Active Substance: IPRATROPIUM
  15. SODIUM CHLORIDE. [Concomitant]
     Active Substance: SODIUM CHLORIDE
  16. CARBOCISTEINE [Concomitant]
     Active Substance: CARBOCYSTEINE

REACTIONS (6)
  - Syncope [Unknown]
  - Back pain [Unknown]
  - Dizziness [Unknown]
  - Orthostatic hypotension [Recovered/Resolved]
  - Loss of consciousness [Unknown]
  - White blood cell count increased [Unknown]

NARRATIVE: CASE EVENT DATE: 20190530
